FAERS Safety Report 9268675 (Version 2)
Quarter: 2014Q2

REPORT INFORMATION
  Report Type: Report from Study
  Country: US (occurrence: US)
  Receive Date: 20130502
  Receipt Date: 20140430
  Transmission Date: 20141212
  Serious: Yes (Other)
  Sender: FDA-Public Use
  Company Number: US-ALEXION-A201300207

PATIENT
  Age: 28 Year
  Sex: Female

DRUGS (1)
  1. SOLIRIS [Suspect]
     Indication: HAEMOLYTIC URAEMIC SYNDROME
     Dosage: UNK

REACTIONS (9)
  - Hepatic enzyme increased [Not Recovered/Not Resolved]
  - Thrombotic microangiopathy [Unknown]
  - Activities of daily living impaired [Unknown]
  - Quality of life decreased [Unknown]
  - Abdominal pain [Unknown]
  - Fatigue [Unknown]
  - Diarrhoea [Unknown]
  - Nausea [Unknown]
  - Vomiting [Unknown]
